FAERS Safety Report 7363234-2 (Version None)
Quarter: 2011Q1

REPORT INFORMATION
  Report Type: 
  Country: None (occurrence: None)
  Receive Date: 20110309
  Receipt Date: 20110221
  Transmission Date: 20110831
  Serious: Yes (Hospitalization)
  Sender: FDA-Public Use
  Company Number: US-ACCORD-008361

PATIENT
  Age: 41 Year
  Sex: Male

DRUGS (5)
  1. LEVETIRACETAM [Suspect]
     Dosage: 500.00-MG
  2. CITALOPRAM(CITALOPRAM) [Concomitant]
  3. CLORAZEPATE(CLORAZEPATE) [Concomitant]
  4. CARBAMAZEPINE(CARBAMAZEPNE) [Concomitant]
  5. AMITRIPTYLINE HYDROCHLORIDE [Concomitant]

REACTIONS (9)
  - ATAXIA [None]
  - BLOOD PRESSURE DIASTOLIC DECREASED [None]
  - OVERDOSE [None]
  - FAMILY STRESS [None]
  - THROMBOCYTOPENIA [None]
  - VISION BLURRED [None]
  - LEUKOPENIA [None]
  - ECONOMIC PROBLEM [None]
  - DEPRESSION [None]
